FAERS Safety Report 16915485 (Version 1)
Quarter: 2019Q4

REPORT INFORMATION
  Report Type: Spontaneous
  Country: GB (occurrence: GB)
  Receive Date: 20191014
  Receipt Date: 20191014
  Transmission Date: 20200122
  Serious: Yes (Other)
  Sender: FDA-Public Use
  Company Number: GB-MYLANLABS-2019M1096335

PATIENT
  Age: 41 Year
  Sex: Male
  Weight: 75.8 kg

DRUGS (8)
  1. BRIVARACETAM [Concomitant]
     Active Substance: BRIVARACETAM
     Dosage: 25 MILLIGRAM, PM (ONE AT NIGHT, INCREASE TO ONE TWICE A DAY AFTER ONE MONTH.)
     Dates: start: 20190417, end: 20190604
  2. TRIMETHOPRIM. [Concomitant]
     Active Substance: TRIMETHOPRIM
     Dosage: 400 MILLIGRAM, QD
     Dates: start: 20190604
  3. OTOMIZE EAR SPRAY [Concomitant]
     Dosage: UNK UNK, TID
     Dates: start: 20190621
  4. LORAZEPAM. [Concomitant]
     Active Substance: LORAZEPAM
     Indication: AGITATION
     Dosage: 1 MILLIGRAM (MAXIMUM 4 TABLETS PER DAY)
     Dates: start: 20190523
  5. FLUOXETINE [Concomitant]
     Active Substance: FLUOXETINE HYDROCHLORIDE
     Dosage: 40 MILLIGRAM, QD
     Dates: start: 20190617
  6. PARACETAMOL [Concomitant]
     Active Substance: ACETAMINOPHEN
     Dosage: 500 MILLIGRAM, PRN (TAKE 1-2 UP TO FOUR TIMES DAILY MAXIMUM 8 TABLETS IN 24HOURS)
     Dates: start: 20190604
  7. CLOBAZAM. [Concomitant]
     Active Substance: CLOBAZAM
     Dosage: 20 MILLIGRAM, QD (FOR TWO WEEKS ONLY)
     Dates: start: 20190517
  8. PREGABALIN. [Suspect]
     Active Substance: PREGABALIN
     Indication: BEHAVIOUR DISORDER
     Dosage: 25 MILLIGRAM
     Route: 048

REACTIONS (1)
  - Priapism [Unknown]

NARRATIVE: CASE EVENT DATE: 20190704
